FAERS Safety Report 10252805 (Version 1)
Quarter: 2014Q2

REPORT INFORMATION
  Report Type: Spontaneous
  Country: US (occurrence: US)
  Receive Date: 20140623
  Receipt Date: 20140623
  Transmission Date: 20141212
  Serious: No
  Sender: FDA-Public Use
  Company Number: US-PFIZER INC-2014167975

PATIENT
  Age: 66 Year
  Sex: Male
  Weight: 85.71 kg

DRUGS (4)
  1. LIPITOR [Suspect]
     Indication: BLOOD CHOLESTEROL INCREASED
     Dosage: UNKNOWN DOSE ONCE A DAY
     Route: 048
     Dates: start: 2012
  2. LISINOPRIL [Concomitant]
     Dosage: UNK
  3. ASPIRIN [Concomitant]
     Dosage: 325MG
  4. PLAVIX [Concomitant]
     Dosage: UNK

REACTIONS (5)
  - Pain [Unknown]
  - Pain in extremity [Unknown]
  - Myalgia [Unknown]
  - Blood potassium increased [Unknown]
  - White blood cell count increased [Unknown]
